FAERS Safety Report 7006898-5 (Version None)
Quarter: 2010Q3

REPORT INFORMATION
  Report Type: 
  Country: None (occurrence: None)
  Receive Date: 20100922
  Receipt Date: 20100909
  Transmission Date: 20110219
  Serious: Yes (Hospitalization)
  Sender: FDA-Public Use
  Company Number: ES-ELI_LILLY_AND_COMPANY-ES201009003123

PATIENT
  Sex: Female
  Weight: 47 kg

DRUGS (4)
  1. FORTEO [Suspect]
     Indication: OSTEOPOROSIS
     Dosage: 20 UG, DAILY (1/D)
     Route: 058
     Dates: start: 20100110
  2. BISOPROLOL [Concomitant]
     Dosage: 5 MG, DAILY (1/D)
  3. DEANXIT [Concomitant]
     Dosage: UNK, DAILY (1/D)
  4. LORAZEPAM [Concomitant]
     Dosage: 1 MG, DAILY (1/D)

REACTIONS (2)
  - INTESTINAL OBSTRUCTION [None]
  - PNEUMONIA [None]
